FAERS Safety Report 16177612 (Version 1)
Quarter: 2019Q2

REPORT INFORMATION
  Report Type: Report from Study
  Country: GB (occurrence: GB)
  Receive Date: 20190410
  Receipt Date: 20190410
  Transmission Date: 20190711
  Serious: Yes (Other)
  Sender: FDA-Public Use
  Company Number: GB-AMGEN-GBRSL2019052039

PATIENT
  Age: 46 Year
  Sex: Male

DRUGS (1)
  1. AMGEVITA [Suspect]
     Active Substance: ADALIMUMAB
     Indication: HIDRADENITIS
     Dosage: 40 MILLIGRAM, QWK
     Route: 065
     Dates: start: 20190207

REACTIONS (13)
  - Dyspnoea exertional [Unknown]
  - Depression [Unknown]
  - Eye irritation [Unknown]
  - Inspiratory capacity decreased [Unknown]
  - Feeling cold [Unknown]
  - Muscular weakness [Unknown]
  - Musculoskeletal pain [Unknown]
  - Hidradenitis [Not Recovered/Not Resolved]
  - Anxiety [Unknown]
  - Headache [Unknown]
  - Infection susceptibility increased [Unknown]
  - Pyrexia [Unknown]
  - Nausea [Unknown]
